FAERS Safety Report 8059088-1 (Version None)
Quarter: 2012Q1

REPORT INFORMATION
  Report Type: 
  Country: None (occurrence: None)
  Receive Date: 20120120
  Receipt Date: 20111121
  Transmission Date: 20120608
  Serious: No
  Sender: FDA-Public Use
  Company Number: US-BAUSCH-2011BL008217

PATIENT
  Age: 30 Year
  Sex: Male

DRUGS (2)
  1. ALAWAY [Suspect]
     Indication: EYE LUBRICATION THERAPY
     Route: 047
     Dates: start: 20111101, end: 20111119
  2. ALAWAY [Suspect]
     Indication: OFF LABEL USE
     Route: 047
     Dates: start: 20111101, end: 20111119

REACTIONS (2)
  - INCORRECT DOSE ADMINISTERED [None]
  - EYE IRRITATION [None]
